FAERS Safety Report 20739665 (Version 1)
Quarter: 2022Q2

REPORT INFORMATION
  Report Type: Report from Study
  Country: US (occurrence: US)
  Receive Date: 20220422
  Receipt Date: 20220422
  Transmission Date: 20220721
  Serious: Yes (Hospitalization, Other)
  Sender: FDA-Public Use
  Company Number: US-EXELIXIS-XL18422050784

PATIENT
  Age: 62 Year
  Sex: Male

DRUGS (7)
  1. NIVOLUMAB [Suspect]
     Active Substance: NIVOLUMAB
     Indication: Dedifferentiated liposarcoma
     Route: 042
     Dates: start: 20211116, end: 20220308
  2. IPILIMUMAB [Suspect]
     Active Substance: IPILIMUMAB
     Indication: Dedifferentiated liposarcoma
     Route: 042
     Dates: start: 20211116, end: 20220215
  3. CABOZANTINIB [Suspect]
     Active Substance: CABOZANTINIB
     Indication: Dedifferentiated liposarcoma
     Route: 048
     Dates: start: 20211116, end: 20220314
  4. LEVOTHYROXINE [Concomitant]
     Active Substance: LEVOTHYROXINE
     Indication: Product used for unknown indication
     Dosage: UNK
     Route: 065
  5. LEVOTHYROXINE [Concomitant]
     Active Substance: LEVOTHYROXINE
     Dosage: UNK
  6. PREDNISONE [Concomitant]
     Active Substance: PREDNISONE
     Indication: Product used for unknown indication
     Dosage: UNK
     Route: 065
  7. PREDNISONE [Concomitant]
     Active Substance: PREDNISONE
     Dosage: UNK

REACTIONS (2)
  - Abdominal abscess [Unknown]
  - Sepsis [Unknown]

NARRATIVE: CASE EVENT DATE: 20220319
